FAERS Safety Report 13911448 (Version 1)
Quarter: 2017Q3

REPORT INFORMATION
  Report Type: Spontaneous
  Country: US (occurrence: US)
  Receive Date: 20170828
  Receipt Date: 20170828
  Transmission Date: 20171127
  Serious: No
  Sender: FDA-Public Use
  Company Number: US-ROCHE-1141959

PATIENT
  Sex: Male

DRUGS (2)
  1. NUTROPIN AQ [Suspect]
     Active Substance: SOMATROPIN
     Indication: GROWTH HORMONE DEFICIENCY
     Route: 065
  2. PIRACETAM [Concomitant]
     Active Substance: PIRACETAM

REACTIONS (3)
  - Upper respiratory tract infection [Unknown]
  - Otitis media [Unknown]
  - Sleep disorder [Unknown]
